FAERS Safety Report 9526527 (Version 2)
Quarter: 2014Q1

REPORT INFORMATION
  Report Type: Spontaneous
  Country: JP (occurrence: JP)
  Receive Date: 20130916
  Receipt Date: 20140130
  Transmission Date: 20141002
  Serious: Yes (Other)
  Sender: FDA-Public Use
  Company Number: JP-ELI_LILLY_AND_COMPANY-JP201309001220

PATIENT
  Sex: Male

DRUGS (2)
  1. GEMZAR [Suspect]
     Indication: BLADDER CANCER
     Dosage: UNK
     Route: 042
  2. CARBOPLATIN [Suspect]
     Indication: BLADDER CANCER
     Dosage: UNK

REACTIONS (1)
  - Oesophageal achalasia [Recovered/Resolved]
